FAERS Safety Report 8511991-1 (Version None)
Quarter: 2012Q3

REPORT INFORMATION
  Report Type: 
  Country: None (occurrence: None)
  Receive Date: 20120716
  Receipt Date: 20120702
  Transmission Date: 20120928
  Serious: Yes (Death, Hospitalization)
  Sender: FDA-Public Use
  Company Number: GB-MYLANLABS-2012S1013357

PATIENT
  Age: 54 Year
  Sex: Male
  Weight: 95 kg

DRUGS (12)
  1. ACETAMINOPHEN AND CODEINE PHOSPHATE [Concomitant]
     Indication: PRODUCT USED FOR UNKNOWN INDICATION
  2. GLICLAZIDE [Concomitant]
     Indication: PRODUCT USED FOR UNKNOWN INDICATION
  3. METFORMIN HYDROCHLORIDE [Concomitant]
     Indication: TYPE 2 DIABETES MELLITUS
     Dates: start: 19960901
  4. DOXAZOSIN MESYLATE [Suspect]
     Indication: PRODUCT USED FOR UNKNOWN INDICATION
  5. AMLODIPINE [Concomitant]
     Indication: PRODUCT USED FOR UNKNOWN INDICATION
  6. ENALAPRIL MALEATE [Concomitant]
     Indication: PRODUCT USED FOR UNKNOWN INDICATION
  7. PRAVASTATIN [Concomitant]
     Indication: PRODUCT USED FOR UNKNOWN INDICATION
  8. AVANDIA [Suspect]
     Indication: TYPE 2 DIABETES MELLITUS
     Dates: start: 20070801
  9. CIPROFIBRATE [Concomitant]
     Indication: PRODUCT USED FOR UNKNOWN INDICATION
  10. AVANDIA [Suspect]
     Dates: start: 20080401
  11. EXENATIDE [Suspect]
     Indication: PRODUCT USED FOR UNKNOWN INDICATION
  12. ASPIRIN [Concomitant]
     Indication: PRODUCT USED FOR UNKNOWN INDICATION

REACTIONS (20)
  - CHRONIC OBSTRUCTIVE PULMONARY DISEASE [None]
  - OEDEMA PERIPHERAL [None]
  - DYSLIPIDAEMIA [None]
  - BRONCHOPNEUMONIA [None]
  - VOMITING [None]
  - DIABETIC MICROANGIOPATHY [None]
  - LIVER FUNCTION TEST ABNORMAL [None]
  - DIZZINESS [None]
  - DIABETIC RETINOPATHY [None]
  - PULMONARY OEDEMA [None]
  - HYPOXIA [None]
  - CARDIOPULMONARY FAILURE [None]
  - NAUSEA [None]
  - MICTURITION DISORDER [None]
  - RENAL FAILURE [None]
  - INFLUENZA [None]
  - HYPERTENSION [None]
  - BLOOD GLUCOSE INCREASED [None]
  - NEPHROTIC SYNDROME [None]
  - ORTHOSTATIC HYPERTENSION [None]
